FAERS Safety Report 7380984-2 (Version None)
Quarter: 2011Q1

REPORT INFORMATION
  Report Type: 
  Country: None (occurrence: None)
  Receive Date: 20110325
  Receipt Date: 20110325
  Transmission Date: 20110831
  Serious: Yes (Hospitalization)
  Sender: FDA-Public Use
  Company Number: None

PATIENT
  Age: 66 Year
  Sex: Female
  Weight: 121.5 kg

DRUGS (13)
  1. PREDNISONE [Suspect]
     Indication: BRONCHITIS
     Dosage: 20MG 3X DAY RECENT
  2. MIRALAX [Concomitant]
  3. COMPLEX [Concomitant]
  4. ASPIRIN [Suspect]
     Indication: TRANSIENT ISCHAEMIC ATTACK
     Dosage: 81MG DAILY PO CHRONIC
     Route: 048
  5. SIMVASTATIN [Concomitant]
  6. FERROUS SULFATE TAB [Concomitant]
  7. LEVOTHYROXINE [Concomitant]
  8. FISH OIL [Concomitant]
  9. FLONASE [Concomitant]
  10. ZYRTEC [Concomitant]
  11. VIT D [Concomitant]
  12. WARFARIN [Suspect]
     Indication: ATRIAL FIBRILLATION
     Dosage: 15MG DAILY PO CHRONIC
     Route: 048
  13. XANAX [Concomitant]

REACTIONS (4)
  - GASTROINTESTINAL HAEMORRHAGE [None]
  - HAEMORRHAGIC ANAEMIA [None]
  - GASTRIC ULCER [None]
  - INTERNATIONAL NORMALISED RATIO INCREASED [None]
